FAERS Safety Report 10161779 (Version 1)
Quarter: 2014Q2

REPORT INFORMATION
  Report Type: Spontaneous
  Country: GB (occurrence: None)
  Receive Date: 20140507
  Receipt Date: 20140507
  Transmission Date: 20141212
  Serious: Yes (Disabling, Congenital Anomaly)
  Sender: FDA-Public Use
  Company Number: 2014-001218

PATIENT
  Age: 0 Day
  Sex: Female
  Weight: 12.6 kg

DRUGS (1)
  1. SARAFEM [Suspect]
     Dates: start: 201101

REACTIONS (9)
  - Dysmorphism [None]
  - Low birth weight baby [None]
  - Head deformity [None]
  - Limb malformation [None]
  - Neck deformity [None]
  - Learning disability [None]
  - Autism [None]
  - Small for dates baby [None]
  - Maternal drugs affecting foetus [None]
